FAERS Safety Report 9470240 (Version 1)
Quarter: 2013Q3

REPORT INFORMATION
  Report Type: Spontaneous
  Country: US (occurrence: US)
  Receive Date: 20130822
  Receipt Date: 20130822
  Transmission Date: 20140515
  Serious: No
  Sender: FDA-Public Use
  Company Number: US-SANOFI-AVENTIS-2013SA039054

PATIENT
  Age: 81 Year
  Sex: Male
  Weight: 72 kg

DRUGS (3)
  1. MULTAQ [Suspect]
     Indication: ATRIAL FIBRILLATION
     Route: 048
     Dates: start: 201009, end: 20130403
  2. FUROSEMIDE [Concomitant]
     Dates: start: 20130201
  3. LUPRON [Concomitant]
     Indication: NEOPLASM MALIGNANT
     Dates: start: 20130429

REACTIONS (7)
  - Dizziness [Recovered/Resolved]
  - Dizziness [Recovered/Resolved]
  - Vision blurred [Recovered/Resolved]
  - Diarrhoea [Not Recovered/Not Resolved]
  - Extra dose administered [Unknown]
  - Drug dose omission [Unknown]
  - Nausea [Recovered/Resolved]
